FAERS Safety Report 20470651 (Version 1)
Quarter: 2022Q1

REPORT INFORMATION
  Report Type: Spontaneous
  Country: AT (occurrence: None)
  Receive Date: 20220214
  Receipt Date: 20220214
  Transmission Date: 20220423
  Serious: Yes (Other)
  Sender: FDA-Public Use
  Company Number: None

PATIENT
  Age: 50 Year
  Sex: Female

DRUGS (1)
  1. PROPOFOL [Suspect]
     Active Substance: PROPOFOL
     Indication: Colonoscopy
     Dosage: GEMASS FACHINFORMATION UND ANWENDUNGSEMPFEHLUNGEN - ACCORDING TO SMPC AND APPLICATION RECOMMENDATION
     Route: 065
     Dates: start: 20211218, end: 20211218

REACTIONS (4)
  - Dyspnoea [Unknown]
  - Type I hypersensitivity [Unknown]
  - Micturition urgency [Unknown]
  - Burning sensation [Unknown]

NARRATIVE: CASE EVENT DATE: 20211218
